FAERS Safety Report 13832738 (Version 1)
Quarter: 2017Q3

REPORT INFORMATION
  Report Type: Spontaneous
  Country: US (occurrence: US)
  Receive Date: 20170803
  Receipt Date: 20170803
  Transmission Date: 20171127
  Serious: No
  Sender: FDA-Public Use
  Company Number: US-ROCHE-699660

PATIENT
  Age: 72 Year
  Sex: Female
  Weight: 60.5 kg

DRUGS (3)
  1. ASA [Concomitant]
     Active Substance: ASPIRIN
     Route: 065
  2. BONIVA [Suspect]
     Active Substance: IBANDRONATE SODIUM
     Indication: OSTEOPOROSIS
     Route: 048
  3. OSCAL [Concomitant]
     Active Substance: CALCIUM CARBONATE
     Route: 065

REACTIONS (4)
  - Joint lock [Unknown]
  - Arthralgia [Unknown]
  - Ocular icterus [Unknown]
  - Pain [Unknown]

NARRATIVE: CASE EVENT DATE: 200903
